FAERS Safety Report 23227383 (Version 1)
Quarter: 2023Q4

REPORT INFORMATION
  Report Type: Spontaneous
  Country: US (occurrence: US)
  Receive Date: 20231124
  Receipt Date: 20231124
  Transmission Date: 20240110
  Serious: Yes (Other)
  Sender: FDA-Public Use
  Company Number: US-PFIZER INC-PV202300189264

PATIENT
  Age: 79 Year
  Sex: Female

DRUGS (1)
  1. PROPOFOL [Suspect]
     Active Substance: PROPOFOL
     Dosage: UNK

REACTIONS (4)
  - Drug hypersensitivity [Unknown]
  - Hypoxia [Unknown]
  - Aspiration [Unknown]
  - Dyspnoea [Unknown]
